FAERS Safety Report 23753190 (Version 1)
Quarter: 2024Q2

REPORT INFORMATION
  Report Type: Spontaneous
  Country: CN (occurrence: CN)
  Receive Date: 20240417
  Receipt Date: 20240417
  Transmission Date: 20240716
  Serious: Yes (Hospitalization, Other)
  Sender: FDA-Public Use
  Company Number: None

PATIENT
  Age: 39 Year
  Sex: Female
  Weight: 71 kg

DRUGS (2)
  1. CYCLOPHOSPHAMIDE [Suspect]
     Active Substance: CYCLOPHOSPHAMIDE
     Indication: Neoplasm malignant
     Dosage: 1 G, QD, DILUTED WITH 0.9% SODIUM CHLORIDE (30 ML), ANTI-TUMOR TREATMENT, START TIME: 15:46 HR
     Route: 041
     Dates: start: 20240319, end: 20240319
  2. SODIUM CHLORIDE [Suspect]
     Active Substance: SODIUM CHLORIDE
     Indication: Medication dilution
     Dosage: 30 ML, QD, USED TO DILUTE CYCLOPHOSPHAMIDE (1 G), ANTI-TUMOR TREATMENT, DOSAGE FORM: INJECTION, STRE
     Route: 041
     Dates: start: 20240319, end: 20240319

REACTIONS (5)
  - Drug-induced liver injury [Unknown]
  - Hepatic function abnormal [Recovering/Resolving]
  - Myelosuppression [Recovering/Resolving]
  - Discomfort [Unknown]
  - Adverse event [Unknown]

NARRATIVE: CASE EVENT DATE: 20240409
